FAERS Safety Report 24010078 (Version 2)
Quarter: 2024Q2

REPORT INFORMATION
  Report Type: Spontaneous
  Country: US (occurrence: US)
  Receive Date: 20240625
  Receipt Date: 20240625
  Transmission Date: 20240716
  Serious: Yes (Other)
  Sender: FDA-Public Use
  Company Number: US-ROCHE-10000004699

PATIENT

DRUGS (1)
  1. XOLAIR [Suspect]
     Active Substance: OMALIZUMAB
     Indication: Product used for unknown indication
     Route: 065

REACTIONS (11)
  - Fatigue [Unknown]
  - Illness [Unknown]
  - Anaphylactic reaction [Unknown]
  - Thermal burn [Unknown]
  - Dyspnoea [Unknown]
  - Brain fog [Unknown]
  - Urticaria [Unknown]
  - Swelling [Unknown]
  - Gait disturbance [Unknown]
  - Arthralgia [Unknown]
  - Bone pain [Unknown]
